FAERS Safety Report 13829340 (Version 2)
Quarter: 2017Q3

REPORT INFORMATION
  Report Type: Spontaneous
  Country: JP (occurrence: JP)
  Receive Date: 20170803
  Receipt Date: 20170912
  Transmission Date: 20171127
  Serious: Yes (Hospitalization)
  Sender: FDA-Public Use
  Company Number: JP-PFIZER INC-2017333970

PATIENT
  Age: 6 Decade
  Sex: Male

DRUGS (4)
  1. LEVOFOLINATE YAKULT [Suspect]
     Active Substance: LEVOLEUCOVORIN CALCIUM
     Indication: COLON CANCER
     Dosage: UNK, ONCE A DAY
     Route: 041
     Dates: start: 20170721, end: 20170721
  2. CAMPTO [Suspect]
     Active Substance: IRINOTECAN
     Indication: COLON CANCER
     Dosage: UNK, ONCE A DAY
     Route: 041
     Dates: start: 20170721, end: 20170721
  3. 5-FU /00098801/ [Concomitant]
     Active Substance: FLUOROURACIL
     Dosage: UNK
     Dates: start: 20170721, end: 20170721
  4. ZALTRAP [Concomitant]
     Active Substance: ZIV-AFLIBERCEPT
     Dosage: UNK
     Dates: start: 20170721, end: 20170721

REACTIONS (1)
  - Diverticulitis [Not Recovered/Not Resolved]

NARRATIVE: CASE EVENT DATE: 20170725
